FAERS Safety Report 8361463-2 (Version None)
Quarter: 2012Q2

REPORT INFORMATION
  Report Type: 
  Country: None (occurrence: None)
  Receive Date: 20120515
  Receipt Date: 20120508
  Transmission Date: 20120825
  Serious: Yes (Other)
  Sender: FDA-Public Use
  Company Number: US-BAYER-2012-045702

PATIENT
  Age: 81 Year
  Sex: Male
  Weight: 86 kg

DRUGS (5)
  1. SIMVASTATIN [Concomitant]
  2. ASPIRIN [Suspect]
     Dosage: 2 DF, QD
     Route: 048
  3. ASPIRIN [Suspect]
     Dosage: 1 DF, QD
     Route: 048
     Dates: start: 20111101
  4. ATENOLOL [Concomitant]
  5. DIGOXIN [Concomitant]

REACTIONS (3)
  - HEART RATE IRREGULAR [None]
  - DIZZINESS [None]
  - ATRIAL FIBRILLATION [None]
